FAERS Safety Report 22038047 (Version 1)
Quarter: 2023Q1

REPORT INFORMATION
  Report Type: Spontaneous
  Country: FR (occurrence: FR)
  Receive Date: 20230227
  Receipt Date: 20230227
  Transmission Date: 20230417
  Serious: Yes (Hospitalization)
  Sender: FDA-Public Use
  Company Number: FR-AFSSAPS-GR2023000087

PATIENT
  Age: 52 Year
  Sex: Female

DRUGS (1)
  1. ACETAMINOPHEN [Suspect]
     Active Substance: ACETAMINOPHEN
     Indication: Intentional overdose
     Dosage: 48 GRAM
     Route: 048
     Dates: start: 20221228, end: 20221228

REACTIONS (2)
  - Poisoning deliberate [Recovered/Resolved]
  - Analgesic drug level increased [Recovering/Resolving]

NARRATIVE: CASE EVENT DATE: 20221228
